FAERS Safety Report 16413062 (Version 6)
Quarter: 2019Q3

REPORT INFORMATION
  Report Type: Spontaneous
  Country: CA (occurrence: CA)
  Receive Date: 20190611
  Receipt Date: 20190910
  Transmission Date: 20191004
  Serious: Yes (Other)
  Sender: FDA-Public Use
  Company Number: CA-CELLTRION INC.-2019CA021072

PATIENT

DRUGS (12)
  1. FOLIC ACID. [Concomitant]
     Active Substance: FOLIC ACID
     Dosage: 1 MG, 1X/DAY
     Route: 048
  2. ATIVAN [Concomitant]
     Active Substance: LORAZEPAM
     Indication: FISTULA
     Dosage: UNK
     Route: 065
  3. INFLECTRA [Suspect]
     Active Substance: INFLIXIMAB-DYYB
     Dosage: 500 MG, INDUCTION 0, 1, 2 WEEKS / FREQUENCY ASAP / MAINTENANCE EVERY 4 WEEKS (RE-INDUCTION)
     Route: 042
     Dates: start: 20190424
  4. INFLECTRA [Suspect]
     Active Substance: INFLIXIMAB-DYYB
     Dosage: 10 MG/KG, Q 6 WEEKS, THEN EVERY 8 WEEKS
     Route: 042
     Dates: start: 20190621
  5. CITALOPRAM [Concomitant]
     Active Substance: CITALOPRAM HYDROBROMIDE
     Dosage: 10 MG, 1X/DAY
     Route: 065
  6. INFLECTRA [Suspect]
     Active Substance: INFLIXIMAB-DYYB
     Indication: CROHN^S DISEASE
     Dosage: 500 MG, ON  0, 2, 6 WEEKS, THEN EVERY 8 WEEKS
     Route: 042
     Dates: start: 20190403, end: 20190403
  7. INFLECTRA [Suspect]
     Active Substance: INFLIXIMAB-DYYB
     Dosage: 10 MG/KG, Q 6 WEEKS, THEN EVERY 8 WEEKS
     Route: 042
     Dates: start: 20190621
  8. PENTASA [Concomitant]
     Active Substance: MESALAMINE
     Dosage: 4 G, 2X/DAY
     Route: 048
  9. INFLECTRA [Suspect]
     Active Substance: INFLIXIMAB-DYYB
     Dosage: 10 MG/KG, Q 6 WEEKS, THEN EVERY 8 WEEKS
     Route: 042
     Dates: start: 20190816
  10. AMOXICILLIN. [Concomitant]
     Active Substance: AMOXICILLIN
     Dosage: UNK
     Route: 065
  11. INFLECTRA [Suspect]
     Active Substance: INFLIXIMAB-DYYB
     Dosage: 500 MG, Q 0, 1, 2 WEEKS THEN EVERY 4 WEEKS (REINDUCTION)
     Route: 042
     Dates: start: 20190430
  12. INFLECTRA [Suspect]
     Active Substance: INFLIXIMAB-DYYB
     Dosage: 10 MG/KG, Q 6 WEEKS, THEN EVERY 8 WEEKS
     Route: 042
     Dates: start: 20190621

REACTIONS (17)
  - Rectal fissure [Unknown]
  - Anxiety disorder [Unknown]
  - Irritability [Unknown]
  - Hyperaesthesia [Unknown]
  - Autism spectrum disorder [Unknown]
  - Gastrointestinal disorder [Unknown]
  - Abscess [Unknown]
  - Anxiety [Unknown]
  - Product use issue [Unknown]
  - Off label use [Unknown]
  - Product dose omission [Unknown]
  - Blood alkaline phosphatase increased [Unknown]
  - Malaise [Not Recovered/Not Resolved]
  - Condition aggravated [Not Recovered/Not Resolved]
  - Arthralgia [Unknown]
  - Stress [Unknown]
  - Inappropriate schedule of product administration [Unknown]

NARRATIVE: CASE EVENT DATE: 20190521
